FAERS Safety Report 23842364 (Version 2)
Quarter: 2024Q2

REPORT INFORMATION
  Report Type: Spontaneous
  Country: US (occurrence: US)
  Receive Date: 20240510
  Receipt Date: 20240513
  Transmission Date: 20240715
  Serious: No
  Sender: FDA-Public Use
  Company Number: US-PFIZER INC-202400104782

PATIENT
  Age: 16 Year
  Sex: Female

DRUGS (1)
  1. CIBINQO [Suspect]
     Active Substance: ABROCITINIB
     Indication: Dermatitis atopic
     Dosage: 100 MG, 1X/DAY
     Dates: start: 202404

REACTIONS (1)
  - Lipids increased [Unknown]

NARRATIVE: CASE EVENT DATE: 20240509
